FAERS Safety Report 6264672-1 (Version None)
Quarter: 2009Q3

REPORT INFORMATION
  Report Type: 
  Country: None (occurrence: None)
  Receive Date: 20090710
  Receipt Date: 20090702
  Transmission Date: 20100115
  Serious: Yes (Other)
  Sender: FDA-Public Use
  Company Number: PHHY2009JP26414

PATIENT
  Age: 11 Year
  Sex: Female
  Weight: 27 kg

DRUGS (8)
  1. TEGRETOL [Suspect]
     Indication: EPILEPSY
     Dosage: 60 MG/DAY
     Route: 048
     Dates: start: 20090225, end: 20090311
  2. TEGRETOL [Suspect]
     Dosage: 120 MG/DAY
     Route: 048
     Dates: start: 20090306, end: 20090311
  3. DEPAKENE [Concomitant]
     Indication: EPILEPSY
     Dosage: 400 MG, UNK
     Route: 048
     Dates: start: 20090120, end: 20090514
  4. DEPAKENE [Concomitant]
     Dosage: 200 MG, UNK
     Route: 048
  5. MEIACT [Concomitant]
  6. MEPTIN [Concomitant]
  7. MUCODYNE [Concomitant]
  8. DIMETHYLAMINOETHYLRESERPILINATE HCL [Concomitant]

REACTIONS (12)
  - HEADACHE [None]
  - IMMUNOGLOBULINS DECREASED [None]
  - LYMPHADENOPATHY [None]
  - LYMPHOCYTE STIMULATION TEST POSITIVE [None]
  - OROPHARYNGEAL PAIN [None]
  - PLATELET COUNT DECREASED [None]
  - PRURIGO [None]
  - PYREXIA [None]
  - RASH [None]
  - SWELLING [None]
  - URTICARIA [None]
  - WHITE BLOOD CELL COUNT DECREASED [None]
